FAERS Safety Report 8175348-8 (Version None)
Quarter: 2012Q1

REPORT INFORMATION
  Report Type: 
  Country: None (occurrence: None)
  Receive Date: 20120229
  Receipt Date: 20120223
  Transmission Date: 20120608
  Serious: Yes (Death, Hospitalization, Other)
  Sender: FDA-Public Use
  Company Number: FR-PFIZER INC-2012018795

PATIENT
  Age: 35 Year
  Sex: Male

DRUGS (7)
  1. EMEND [Concomitant]
     Dosage: 80 MG, 1X/DAY
     Route: 048
     Dates: start: 20111110, end: 20111119
  2. CYTARABINE [Suspect]
     Indication: ACUTE LYMPHOCYTIC LEUKAEMIA
     Dosage: 1 DF, 1X/DAY
     Route: 042
     Dates: start: 20111110, end: 20111114
  3. MESNA [Concomitant]
     Dosage: 20 MG/KG, 1X/DAY
     Route: 042
     Dates: start: 20111117
  4. EVOLTRA [Suspect]
     Indication: ACUTE LYMPHOCYTIC LEUKAEMIA
     Dosage: 30 MG/M2, 1X/DAY
     Route: 042
     Dates: start: 20111110, end: 20111114
  5. ZOFRAN [Concomitant]
     Dosage: 8 MG, 1X/DAY
     Route: 048
     Dates: start: 20111110, end: 20111119
  6. CYCLOPHOSPHAMIDE [Concomitant]
     Dosage: 60 MG/KG, 1X/DAY
     Route: 042
     Dates: start: 20111117
  7. SPRYCEL [Concomitant]
     Dosage: UNK
     Route: 048
     Dates: start: 20110418, end: 20111109

REACTIONS (11)
  - THROMBOCYTOPENIA [None]
  - SEPTIC SHOCK [None]
  - RENAL FAILURE ACUTE [None]
  - GENERALISED OEDEMA [None]
  - ERYTHEMA [None]
  - DIARRHOEA [None]
  - RESPIRATORY ALKALOSIS [None]
  - ANURIA [None]
  - TACHYCARDIA [None]
  - MULTI-ORGAN FAILURE [None]
  - SKIN EXFOLIATION [None]
